FAERS Safety Report 10458598 (Version 2)
Quarter: 2014Q3

REPORT INFORMATION
  Report Type: Spontaneous
  Country: PL (occurrence: PL)
  Receive Date: 20140917
  Receipt Date: 20140917
  Transmission Date: 20150326
  Serious: Yes (Other)
  Sender: FDA-Public Use
  Company Number: PL-RANBAXY-2014RR-85495

PATIENT
  Age: 27 Year
  Sex: Male

DRUGS (4)
  1. RISPERIDONE. [Suspect]
     Active Substance: RISPERIDONE
     Indication: SCHIZOPHRENIA, PARANOID TYPE
     Dosage: GRADUALLY INCREASED TO 5 MG/DAY
     Route: 065
  2. OLANZAPINE. [Suspect]
     Active Substance: OLANZAPINE
     Indication: SCHIZOPHRENIA, PARANOID TYPE
     Dosage: 15 MG AT BEDTIME
     Route: 065
  3. OLANZAPINE. [Suspect]
     Active Substance: OLANZAPINE
     Indication: SCHIZOPHRENIA, PARANOID TYPE
     Dosage: 20 MG, DAILY
     Route: 065
  4. RISPERIDONE. [Suspect]
     Active Substance: RISPERIDONE
     Indication: SCHIZOPHRENIA, PARANOID TYPE
     Dosage: 3 MG, DAILY
     Route: 065

REACTIONS (12)
  - Low density lipoprotein decreased [Recovered/Resolved]
  - Nausea [Unknown]
  - Blood cholesterol increased [Recovered/Resolved]
  - Sedation [Unknown]
  - Drug ineffective [Unknown]
  - Akathisia [Unknown]
  - Disturbance in attention [Unknown]
  - Asthenia [Unknown]
  - High density lipoprotein increased [Recovered/Resolved]
  - Blood triglycerides increased [Recovered/Resolved]
  - Transaminases increased [Recovered/Resolved]
  - Abdominal pain [Unknown]
